FAERS Safety Report 14481824 (Version 3)
Quarter: 2018Q1

REPORT INFORMATION
  Report Type: Spontaneous
  Country: US (occurrence: EG)
  Receive Date: 20180202
  Receipt Date: 20180313
  Transmission Date: 20180509
  Serious: Yes (Death, Congenital Anomaly, Other)
  Sender: FDA-Public Use
  Company Number: US-SUNOVION-2018SUN000359

PATIENT
  Age: 0 Day

DRUGS (11)
  1. AVAMYS [Concomitant]
     Active Substance: FLUTICASONE FUROATE
     Dosage: UNK
     Dates: start: 20170604
  2. DEXAMETHASONE. [Concomitant]
     Active Substance: DEXAMETHASONE
     Dosage: UNK
     Dates: start: 20170919
  3. ASMAKAST [Concomitant]
     Active Substance: MONTELUKAST SODIUM
     Dosage: 10 MG, UNK
  4. GLYCOPYRROLATE. [Suspect]
     Active Substance: GLYCOPYRROLATE
     Indication: FOETAL EXPOSURE DURING PREGNANCY
     Dosage: UNK
     Route: 064
  5. FORADIL [Suspect]
     Active Substance: FORMOTEROL FUMARATE
     Indication: FOETAL EXPOSURE DURING PREGNANCY
     Dosage: UNK
     Route: 064
  6. QUIBRON [Concomitant]
     Dosage: UNK
     Dates: start: 20170604
  7. DELAREX [Concomitant]
     Dosage: UNK
     Dates: start: 20170604
  8. MIFLONIDE [Suspect]
     Active Substance: BUDESONIDE
     Indication: FOETAL EXPOSURE DURING PREGNANCY
     Dosage: UNK
     Route: 064
  9. SYMBICORT [Concomitant]
     Active Substance: BUDESONIDE\FORMOTEROL FUMARATE DIHYDRATE
     Dosage: UNK
     Dates: start: 20170604
  10. PROTOFIX [Concomitant]
     Dosage: 20 MG, UNK
     Dates: start: 20170604
  11. ANTODINE [Concomitant]
     Dosage: 20 MG, UNK
     Dates: start: 20170604

REACTIONS (7)
  - Cleft lip [Unknown]
  - Ventricular septal defect [Unknown]
  - Spina bifida [Unknown]
  - Cleft palate [Unknown]
  - Death neonatal [Fatal]
  - Foetal exposure during pregnancy [Unknown]
  - Multiple congenital abnormalities [Unknown]

NARRATIVE: CASE EVENT DATE: 20171015
